FAERS Safety Report 18607922 (Version 1)
Quarter: 2020Q4

REPORT INFORMATION
  Report Type: Spontaneous
  Country: DE (occurrence: DE)
  Receive Date: 20201211
  Receipt Date: 20201211
  Transmission Date: 20210114
  Serious: Yes (Other)
  Sender: FDA-Public Use
  Company Number: DE-009507513-2012DEU004729

PATIENT
  Age: 61 Year
  Sex: Male
  Weight: 101 kg

DRUGS (11)
  1. OMEP [Concomitant]
     Active Substance: OMEPRAZOLE
     Dosage: 40MG HARD CAPSULES, 1 CAPSULE DAILY
     Dates: start: 201012
  2. SALBUHEXAL [Concomitant]
     Active Substance: ALBUTEROL
     Dosage: 1 MILLILITER, QD
     Dates: start: 201912
  3. JANUVIA [Suspect]
     Active Substance: SITAGLIPTIN PHOSPHATE
     Dosage: 100 MILLIGRAM
     Route: 048
     Dates: start: 202011
  4. AMITRIPTYLIN NEURAXPHARM [Concomitant]
     Active Substance: AMITRIPTYLINE
     Dosage: 50 MG, ONE TABLET DAILY
     Dates: start: 201412
  5. ASPIRIN. [Concomitant]
     Active Substance: ASPIRIN
     Dosage: 100MG, ONE TABLET DAILY
     Dates: start: 201912
  6. GLIMEPIRID RATIOPHARM [Concomitant]
     Dosage: 3MG, ONE TABLET DAILY
     Dates: start: 201612
  7. BRIMICA GENUAIR [Concomitant]
     Active Substance: ACLIDINIUM BROMIDE\FORMOTEROL FUMARATE
     Dosage: 1 MILLILITER, QD
     Dates: start: 201012
  8. SPIRONOLACTONE. [Concomitant]
     Active Substance: SPIRONOLACTONE
     Dosage: 50MG, ONE TABLET DAILY
     Dates: start: 201912
  9. LERCANIDIPIN OMNIAPHARM [Concomitant]
     Active Substance: LERCANIDIPINE HYDROCHLORIDE
     Dosage: 10MG, ONE TABLET DAILY
     Dates: start: 201912
  10. INSUMAN RAPID [Concomitant]
     Active Substance: INSULIN HUMAN
     Dosage: 3 INJECTIONS DAILY
     Dates: start: 201612
  11. TELMISARTAN. [Concomitant]
     Active Substance: TELMISARTAN
     Dosage: 80 MILLIGRAM
     Dates: start: 201912

REACTIONS (2)
  - Diabetes mellitus inadequate control [Recovered/Resolved]
  - Confusional state [Recovered/Resolved]

NARRATIVE: CASE EVENT DATE: 202011
